FAERS Safety Report 5242483-3 (Version None)
Quarter: 2007Q1

REPORT INFORMATION
  Report Type: 
  Country: None (occurrence: None)
  Receive Date: 20070214
  Receipt Date: 20070129
  Transmission Date: 20070707
  Serious: Yes (Hospitalization)
  Sender: FDA-Public Use
  Company Number: 235186K06USA

PATIENT
  Age: 76 Year
  Sex: Male
  Weight: 92.9874 kg

DRUGS (1)
  1. REBIF [Suspect]
     Indication: MULTIPLE SCLEROSIS
     Dosage: 44 MCG, 3 IN 1 WEEKS, SUBCUTANEOUS
     Route: 058
     Dates: start: 20020212

REACTIONS (2)
  - INJECTION SITE CELLULITIS [None]
  - WRONG TECHNIQUE IN DRUG USAGE PROCESS [None]
